FAERS Safety Report 7128929-4 (Version None)
Quarter: 2010Q4

REPORT INFORMATION
  Report Type: 
  Country: None (occurrence: None)
  Receive Date: 20101130
  Receipt Date: 20101124
  Transmission Date: 20110411
  Serious: Yes (Other)
  Sender: FDA-Public Use
  Company Number: B0678115A

PATIENT
  Sex: Male
  Weight: 7 kg

DRUGS (1)
  1. AZANTAC [Suspect]
     Dosage: 25MG TWICE PER DAY
     Route: 048
     Dates: start: 20100707, end: 20100708

REACTIONS (3)
  - DYSPNOEA [None]
  - OFF LABEL USE [None]
  - SALIVA ALTERED [None]
